FAERS Safety Report 10309288 (Version 2)
Quarter: 2014Q3

REPORT INFORMATION
  Report Type: Spontaneous
  Country: DE (occurrence: DE)
  Receive Date: 20140716
  Receipt Date: 20140718
  Transmission Date: 20150326
  Serious: Yes (Hospitalization, Other)
  Sender: FDA-Public Use
  Company Number: DE-GILEAD-2014-0108896

PATIENT
  Age: 53 Year
  Sex: Male
  Weight: 85.5 kg

DRUGS (8)
  1. TRUVADA [Suspect]
     Active Substance: EMTRICITABINE\TENOFOVIR DISOPROXIL FUMARATE
     Indication: HIV INFECTION
     Dosage: UNK
     Route: 065
     Dates: start: 20090401
  2. REYATAZ [Concomitant]
     Active Substance: ATAZANAVIR SULFATE
  3. DIGIMERCK [Concomitant]
     Active Substance: DIGITOXIN
     Dosage: 0.07 DF, UNK
  4. ASPIRIN. [Concomitant]
     Active Substance: ASPIRIN
     Dosage: 100 DF, UNK
  5. NEBILET [Concomitant]
     Active Substance: NEBIVOLOL
  6. IODIDE [Concomitant]
     Dosage: 100 DF, UNK
  7. PRAVASTATIN [Concomitant]
     Active Substance: PRAVASTATIN\PRAVASTATIN SODIUM
     Dosage: 40 DF, UNK
  8. L THYROX [Concomitant]
     Dosage: 100 DF, UNK

REACTIONS (1)
  - Humerus fracture [Not Recovered/Not Resolved]

NARRATIVE: CASE EVENT DATE: 20140625
